FAERS Safety Report 6285137-7 (Version None)
Quarter: 2009Q3

REPORT INFORMATION
  Report Type: 
  Country: None (occurrence: None)
  Receive Date: 20090727
  Receipt Date: 20090715
  Transmission Date: 20100115
  Serious: Yes (Hospitalization)
  Sender: FDA-Public Use
  Company Number: TR-PFIZER INC-2009242154

PATIENT
  Age: 46 Year

DRUGS (2)
  1. LATANOPROST [Suspect]
     Indication: GLAUCOMA
     Dosage: UNK
     Route: 061
     Dates: start: 20090608, end: 20090608
  2. DIDERAL [Concomitant]
     Dosage: 40 MG, UNK
     Dates: start: 20090602

REACTIONS (4)
  - DIZZINESS [None]
  - HYPOTENSION [None]
  - NAUSEA [None]
  - SYNCOPE [None]
